FAERS Safety Report 19396645 (Version 7)
Quarter: 2022Q4

REPORT INFORMATION
  Report Type: Report from Study
  Country: US (occurrence: US)
  Receive Date: 20210609
  Receipt Date: 20221109
  Transmission Date: 20230112
  Serious: No
  Sender: FDA-Public Use
  Company Number: NVSC2021US130054

PATIENT
  Sex: Female

DRUGS (1)
  1. TABRECTA [Suspect]
     Active Substance: CAPMATINIB
     Indication: Non-small cell lung cancer
     Dosage: UNK
     Route: 065

REACTIONS (3)
  - Head discomfort [Unknown]
  - Peripheral swelling [Unknown]
  - Product availability issue [Unknown]
